FAERS Safety Report 16046294 (Version 1)
Quarter: 2019Q1

REPORT INFORMATION
  Report Type: Spontaneous
  Country: US (occurrence: US)
  Receive Date: 20190307
  Receipt Date: 20190307
  Transmission Date: 20190418
  Serious: No
  Sender: FDA-Public Use
  Company Number: US-LEADING PHARMA, LLC-2063648

PATIENT
  Age: 67 Year
  Sex: Female

DRUGS (1)
  1. FUROSEMIDE TABLETS , 20 MG, 40 MG AND 80 MG [Suspect]
     Active Substance: FUROSEMIDE
     Route: 048

REACTIONS (7)
  - Neuralgia [Recovered/Resolved]
  - Urinary incontinence [Not Recovered/Not Resolved]
  - Genital pain [None]
  - Ill-defined disorder [Recovered/Resolved]
  - Swelling face [Recovered/Resolved]
  - Pain in extremity [Not Recovered/Not Resolved]
  - Lip swelling [None]
